FAERS Safety Report 8777010 (Version 2)
Quarter: 2012Q4

REPORT INFORMATION
  Report Type: 
  Country: US (occurrence: US)
  Receive Date: 20120911
  Receipt Date: 20121023
  Transmission Date: 20130627
  Serious: Yes (Hospitalization)
  Sender: FDA-Public Use
  Company Number: US-BAYER-2012-093780

PATIENT
  Age: 46 Year
  Sex: Female
  Weight: 112.9 kg

DRUGS (9)
  1. YAZ [Suspect]
     Indication: MENORRHAGIA
     Dosage: UNK
     Dates: start: 20060316, end: 20100929
  2. YASMIN [Suspect]
     Dosage: UNK
     Dates: start: 20060316, end: 20100929
  3. OCELLA [Suspect]
     Dosage: UNK
     Dates: start: 20060316, end: 20100929
  4. SYNTHROID [Concomitant]
     Dosage: 75 ?g, daily
  5. RESPIRATORY SYSTEM [Concomitant]
     Dosage: 5 mg, daily
  6. SUDAFED [Concomitant]
     Dosage: UNK UNK, PRN
  7. ALBUTEROL [Concomitant]
     Dosage: UNK UNK, PRN
     Route: 045
  8. NAPROXEN [Concomitant]
  9. TYLENOL [Concomitant]

REACTIONS (7)
  - Deep vein thrombosis [None]
  - Injury [None]
  - Pain [None]
  - Emotional distress [None]
  - General physical health deterioration [None]
  - Anxiety [None]
  - Pain [None]
